FAERS Safety Report 16025258 (Version 2)
Quarter: 2019Q1

REPORT INFORMATION
  Report Type: Spontaneous
  Country: US (occurrence: US)
  Receive Date: 20190301
  Receipt Date: 20190306
  Transmission Date: 20190418
  Serious: Yes (Other)
  Sender: FDA-Public Use
  Company Number: US-ASTRAZENECA-2018SF34845

PATIENT

DRUGS (17)
  1. URSODIOL. [Concomitant]
     Active Substance: URSODIOL
  2. ATENOLOL. [Concomitant]
     Active Substance: ATENOLOL
  3. PREVACID [Suspect]
     Active Substance: LANSOPRAZOLE
     Route: 065
     Dates: start: 200502, end: 200704
  4. CIPROFLOXACIN. [Concomitant]
     Active Substance: CIPROFLOXACIN
  5. CLONIDINE. [Concomitant]
     Active Substance: CLONIDINE
  6. DICYCLOMINE [Concomitant]
     Active Substance: DICYCLOMINE HYDROCHLORIDE
  7. PROTONIX [Suspect]
     Active Substance: PANTOPRAZOLE SODIUM
     Route: 065
     Dates: start: 200502, end: 200704
  8. AZATHIOPRINE. [Concomitant]
     Active Substance: AZATHIOPRINE
  9. NEXIUM [Suspect]
     Active Substance: ESOMEPRAZOLE MAGNESIUM
     Route: 048
     Dates: start: 200502, end: 200704
  10. SIMBRINZA [Concomitant]
     Active Substance: BRIMONIDINE TARTRATE\BRINZOLAMIDE
  11. PREVACID IV [Suspect]
     Active Substance: LANSOPRAZOLE
     Route: 042
     Dates: start: 200502, end: 200704
  12. PREDNISONE. [Concomitant]
     Active Substance: PREDNISONE
  13. SENSIPAR [Concomitant]
     Active Substance: CINACALCET HYDROCHLORIDE
  14. AMLODIPINE [Concomitant]
     Active Substance: AMLODIPINE BESYLATE
  15. ZANTAC [Concomitant]
     Active Substance: RANITIDINE HYDROCHLORIDE
  16. RENVELA [Concomitant]
     Active Substance: SEVELAMER CARBONATE
  17. CYPROHEPTADINE. [Concomitant]
     Active Substance: CYPROHEPTADINE

REACTIONS (5)
  - Chronic kidney disease [Unknown]
  - Nephropathy [Unknown]
  - Acute kidney injury [Unknown]
  - Renal failure [Unknown]
  - End stage renal disease [Unknown]
